FAERS Safety Report 9494684 (Version 2)
Quarter: 2013Q3

REPORT INFORMATION
  Report Type: Report from Study
  Country: US (occurrence: US)
  Receive Date: 20130903
  Receipt Date: 20130913
  Transmission Date: 20140515
  Serious: Yes (Life-Threatening, Hospitalization)
  Sender: FDA-Public Use
  Company Number: US-JNJFOC-20130817452

PATIENT
  Age: 38 Year
  Sex: Male

DRUGS (4)
  1. NUCYNTA [Suspect]
     Indication: BACK PAIN
     Dosage: SUPPOSEDLY TOOK 160 PLUS TABLETS OF 50 MG TAPENTADOL HYDROCHLORIDE
     Route: 065
  2. DIAZEPAM [Suspect]
     Indication: PRODUCT USED FOR UNKNOWN INDICATION
     Route: 065
  3. CYCLOBENZAPRINE [Suspect]
     Indication: PRODUCT USED FOR UNKNOWN INDICATION
     Route: 065
  4. PREGABALIN [Suspect]
     Indication: PRODUCT USED FOR UNKNOWN INDICATION
     Route: 065

REACTIONS (9)
  - Suicide attempt [Unknown]
  - Intentional overdose [Unknown]
  - Cardiac arrest [Unknown]
  - Respiratory depression [Recovered/Resolved]
  - Fluid retention [Unknown]
  - Aspiration [Unknown]
  - Hypotension [Recovered/Resolved]
  - Nausea [Unknown]
  - Pain [Unknown]
